FAERS Safety Report 22077934 (Version 2)
Quarter: 2023Q1

REPORT INFORMATION
  Report Type: Report from Study
  Country: JP (occurrence: JP)
  Receive Date: 20230309
  Receipt Date: 20230329
  Transmission Date: 20230417
  Serious: Yes (Hospitalization)
  Sender: FDA-Public Use
  Company Number: JP-JNJFOC-20230305721

PATIENT
  Age: 84 Year
  Sex: Male

DRUGS (12)
  1. IMBRUVICA [Suspect]
     Active Substance: IBRUTINIB
     Indication: Chronic lymphocytic leukaemia
     Dosage: IBRUTINIB:140MG
     Route: 048
     Dates: start: 20190529
  2. IMBRUVICA [Suspect]
     Active Substance: IBRUTINIB
     Indication: Chronic lymphocytic leukaemia
     Dosage: IBRUTINIB:140MG
     Route: 048
     Dates: start: 20181029, end: 20190528
  3. BISOPROLOL FUMARATE [Concomitant]
     Active Substance: BISOPROLOL FUMARATE
     Indication: Atrial fibrillation
     Dosage: DOSE UNKNOWN
     Route: 048
     Dates: start: 2021
  4. BISOPROLOL FUMARATE [Concomitant]
     Active Substance: BISOPROLOL FUMARATE
     Indication: Atrial fibrillation
     Dosage: DOSE UNKNOWN
     Route: 048
     Dates: start: 2021
  5. EDOXABAN TOSYLATE [Concomitant]
     Active Substance: EDOXABAN TOSYLATE
     Indication: Product used for unknown indication
     Dosage: DOSE UNKNOWN
     Route: 065
     Dates: start: 2021
  6. EDOXABAN TOSYLATE [Concomitant]
     Active Substance: EDOXABAN TOSYLATE
     Indication: Product used for unknown indication
     Dosage: DOSE UNKNOWN?EDOXABAN TOSILATE HYDRATE
     Route: 065
     Dates: start: 2021
  7. ASPIRIN [Concomitant]
     Active Substance: ASPIRIN
     Indication: Product used for unknown indication
     Dosage: DOSE UNKNOWN
     Route: 048
     Dates: start: 20210210, end: 2021
  8. ASPIRIN [Concomitant]
     Active Substance: ASPIRIN
     Indication: Product used for unknown indication
     Dosage: FIRST ADMIN DATE 2021?DOSE UNKNOWN?ASPIRIN
     Route: 048
  9. ASPIRIN [Concomitant]
     Active Substance: ASPIRIN
     Indication: Product used for unknown indication
     Dosage: DOSE UNKNOWN
     Route: 048
     Dates: start: 2021
  10. ASPIRIN [Concomitant]
     Active Substance: ASPIRIN
     Indication: Product used for unknown indication
     Dosage: LAST ADMIN DATE 2021?DOSE UNKNOWN?ASPIRIN
     Route: 048
     Dates: start: 20210210
  11. ELIQUIS [Concomitant]
     Active Substance: APIXABAN
     Indication: Atrial fibrillation
     Dosage: DOSE UNKNOWN
     Route: 048
     Dates: start: 20210310, end: 2021
  12. ELIQUIS [Concomitant]
     Active Substance: APIXABAN
     Indication: Atrial fibrillation
     Dosage: LAST ADMIN DATE 2021?DOSE UNKNOWN. APIXABAN
     Route: 048
     Dates: start: 20210310

REACTIONS (4)
  - Cerebellar infarction [Recovered/Resolved]
  - Malaise [Recovering/Resolving]
  - Diarrhoea [Recovering/Resolving]
  - Atrial fibrillation [Recovering/Resolving]

NARRATIVE: CASE EVENT DATE: 20190304
